FAERS Safety Report 4806433-3 (Version None)
Quarter: 2005Q4

REPORT INFORMATION
  Report Type: 
  Country: None (occurrence: None)
  Receive Date: 20051019
  Receipt Date: 20051005
  Transmission Date: 20060501
  Serious: Yes (Hospitalization)
  Sender: FDA-Public Use
  Company Number: 2005BI018692

PATIENT
  Age: 49 Year
  Sex: Female
  Weight: 78.0187 kg

DRUGS (2)
  1. AVONEX LYOPHILIZED [Suspect]
     Indication: MULTIPLE SCLEROSIS
     Dosage: 30 UG QW IM
     Route: 030
     Dates: start: 19960101, end: 20030101
  2. AVONEX LIQUID [Suspect]
     Indication: MULTIPLE SCLEROSIS
     Dosage: 30 UG QW IM
     Route: 030
     Dates: start: 20050801

REACTIONS (8)
  - ASTHENIA [None]
  - DEPRESSION [None]
  - HYPOXIA [None]
  - LOSS OF CONSCIOUSNESS [None]
  - OSTEOPOROSIS [None]
  - PULMONARY THROMBOSIS [None]
  - THROMBOSIS [None]
  - TRIGEMINAL NEURALGIA [None]
